FAERS Safety Report 11151365 (Version 1)
Quarter: 2015Q2

REPORT INFORMATION
  Report Type: Spontaneous
  Country: JP (occurrence: JP)
  Receive Date: 20150601
  Receipt Date: 20150601
  Transmission Date: 20150821
  Serious: Yes (Other)
  Sender: FDA-Public Use
  Company Number: JP-BRISTOL-MYERS SQUIBB COMPANY-BMS-2015-034562

PATIENT
  Age: 74 Year
  Sex: Male

DRUGS (2)
  1. ERBITUX [Suspect]
     Active Substance: CETUXIMAB
     Indication: SQUAMOUS CELL CARCINOMA OF HEAD AND NECK
     Dosage: UNK
     Route: 041
     Dates: start: 20130807, end: 20130918
  2. FENTOS [Suspect]
     Active Substance: FENTANYL
     Indication: OROPHARYNGEAL PAIN
     Route: 062

REACTIONS (13)
  - Decreased appetite [Recovered/Resolved]
  - Depressed level of consciousness [Recovered/Resolved]
  - Pharyngeal inflammation [Recovering/Resolving]
  - Stomatitis [Recovering/Resolving]
  - Pyrexia [Recovered/Resolved]
  - Dysphagia [Recovering/Resolving]
  - Aspiration [Recovering/Resolving]
  - Dermatitis acneiform [Recovered/Resolved]
  - Dry mouth [Recovering/Resolving]
  - Delirium [Recovered/Resolved]
  - Constipation [Recovering/Resolving]
  - Dysgeusia [Recovering/Resolving]
  - Dry skin [Recovered/Resolved]

NARRATIVE: CASE EVENT DATE: 20140809
